FAERS Safety Report 8007319-6 (Version None)
Quarter: 2011Q4

REPORT INFORMATION
  Report Type: 
  Country: None (occurrence: None)
  Receive Date: 20111227
  Receipt Date: 20111214
  Transmission Date: 20120403
  Serious: Yes (Other)
  Sender: FDA-Public Use
  Company Number: GR-ASTELLAS-2011US008667

PATIENT
  Age: 32 Week
  Sex: Male

DRUGS (1)
  1. AMBISOME [Suspect]
     Indication: CANDIDIASIS
     Dosage: UNK
     Route: 065

REACTIONS (8)
  - THROMBOCYTOPENIA [None]
  - LEUKOPENIA [None]
  - GENERAL PHYSICAL HEALTH DETERIORATION [None]
  - NEUTROPENIA [None]
  - SEPSIS [None]
  - HEPATIC FUNCTION ABNORMAL [None]
  - DRUG INEFFECTIVE [None]
  - MENINGITIS [None]
